FAERS Safety Report 8765609 (Version 3)
Quarter: 2012Q4

REPORT INFORMATION
  Report Type: 
  Country: DE (occurrence: DE)
  Receive Date: 20120903
  Receipt Date: 20120918
  Transmission Date: 20130627
  Serious: Yes (Other)
  Sender: FDA-Public Use
  Company Number: DE-UCBSA-064607

PATIENT
  Age: 63 Year
  Sex: Male

DRUGS (3)
  1. LEVETIRACETAM UCB [Suspect]
     Indication: EPILEPSY
     Route: 048
     Dates: start: 201203
  2. ENALAPRIL [Concomitant]
  3. MARCUMAR [Concomitant]

REACTIONS (1)
  - Blood count abnormal [Unknown]
